FAERS Safety Report 23333708 (Version 2)
Quarter: 2024Q1

REPORT INFORMATION
  Report Type: Spontaneous
  Country: DE (occurrence: DE)
  Receive Date: 20231223
  Receipt Date: 20240208
  Transmission Date: 20240410
  Serious: Yes (Other)
  Sender: FDA-Public Use
  Company Number: DE-MIBEB-20233856

PATIENT
  Age: 9 Year
  Sex: Female

DRUGS (2)
  1. PREDNISOLONE ACETATE [Suspect]
     Active Substance: PREDNISOLONE ACETATE
     Indication: Uveitis
     Dosage: LOW DOSE ({= 2X/DAY)
     Route: 047
  2. METHOTREXATE [Concomitant]
     Active Substance: METHOTREXATE
     Indication: Uveitis
     Route: 065

REACTIONS (1)
  - Ocular hypertension [Recovered/Resolved]
